FAERS Safety Report 6673570-0 (Version None)
Quarter: 2010Q2

REPORT INFORMATION
  Report Type: 
  Country: None (occurrence: None)
  Receive Date: 20100408
  Receipt Date: 20100329
  Transmission Date: 20101027
  Serious: Yes (Hospitalization, Other)
  Sender: FDA-Public Use
  Company Number: US-PFIZER INC-2010022119

PATIENT
  Sex: Female
  Weight: 74.842 kg

DRUGS (16)
  1. LYRICA [Suspect]
     Indication: PAIN
     Dosage: 25 MG, 1X/DAY
     Route: 048
     Dates: start: 20080301
  2. LYRICA [Suspect]
     Dosage: 225 MG, 1X/DAY
  3. THEOPHYLLINE [Concomitant]
     Indication: ASTHMA
     Dosage: UNK
  4. XANAX [Concomitant]
     Dosage: 2 MG, UNK
  5. ADVAIR DISKUS 100/50 [Concomitant]
     Dosage: UNK
  6. LEVOTHYROXINE [Concomitant]
     Dosage: UNK
  7. CALCIUM [Concomitant]
     Dosage: UNK
  8. FISH OIL [Concomitant]
     Dosage: UNK
  9. VITAMINS [Concomitant]
     Dosage: UNK
  10. METFORMIN [Concomitant]
     Dosage: 500 MG, UNK
  11. ASPIRIN [Concomitant]
     Dosage: 81 MG, UNK
  12. CIMETIDINE [Concomitant]
     Dosage: 400 MG, 1X/DAY
  13. PRAVASTATIN [Concomitant]
     Dosage: 40 MG, 1X/DAY
  14. IBUPROFEN [Concomitant]
     Dosage: UNK
  15. CYCLOBENZAPRINE [Concomitant]
     Dosage: UNK
  16. TYLENOL-500 [Concomitant]
     Dosage: UNK

REACTIONS (13)
  - BALANCE DISORDER [None]
  - BLOOD CHOLESTEROL DECREASED [None]
  - BLOOD GLUCOSE DECREASED [None]
  - DEPRESSION [None]
  - FALL [None]
  - FEELING ABNORMAL [None]
  - HEPATIC FUNCTION ABNORMAL [None]
  - PNEUMONIA [None]
  - SOMNOLENCE [None]
  - SPEECH DISORDER [None]
  - UNDERWEIGHT [None]
  - VISUAL IMPAIRMENT [None]
  - WEIGHT INCREASED [None]
